FAERS Safety Report 10844260 (Version 3)
Quarter: 2015Q4

REPORT INFORMATION
  Report Type: Report from Study
  Country: US (occurrence: US)
  Receive Date: 20150220
  Receipt Date: 20151105
  Transmission Date: 20160304
  Serious: Yes (Other)
  Sender: FDA-Public Use
  Company Number: US-SA-2013SA121353

PATIENT
  Age: 44 Year
  Sex: Female

DRUGS (4)
  1. AUBAGIO [Suspect]
     Active Substance: TERIFLUNOMIDE
     Indication: MULTIPLE SCLEROSIS
     Route: 048
     Dates: start: 20131025
  2. AUBAGIO [Suspect]
     Active Substance: TERIFLUNOMIDE
     Indication: MULTIPLE SCLEROSIS
     Route: 048
     Dates: start: 20141208
  3. AUBAGIO [Suspect]
     Active Substance: TERIFLUNOMIDE
     Indication: MULTIPLE SCLEROSIS
     Route: 048
     Dates: start: 20141208
  4. AUBAGIO [Suspect]
     Active Substance: TERIFLUNOMIDE
     Indication: MULTIPLE SCLEROSIS
     Route: 048
     Dates: start: 20131025

REACTIONS (24)
  - Headache [Unknown]
  - Alopecia [Recovering/Resolving]
  - Paraesthesia [Recovered/Resolved]
  - Hypoaesthesia [Unknown]
  - Dysphagia [Unknown]
  - Vision blurred [Not Recovered/Not Resolved]
  - Hypoaesthesia [Unknown]
  - Therapeutic response unexpected [Unknown]
  - Dyspnoea [Unknown]
  - Swelling [Unknown]
  - Memory impairment [Unknown]
  - Pain [Unknown]
  - Feeling abnormal [Unknown]
  - Ear disorder [Unknown]
  - Gastrooesophageal reflux disease [Unknown]
  - Iritis [Not Recovered/Not Resolved]
  - Pain [Recovered/Resolved]
  - Migraine [Unknown]
  - Headache [Recovered/Resolved]
  - Thinking abnormal [Unknown]
  - Gastric disorder [Unknown]
  - Sensory disturbance [Unknown]
  - Ear discomfort [Unknown]
  - Hypoaesthesia [Recovered/Resolved]

NARRATIVE: CASE EVENT DATE: 201402
